FAERS Safety Report 15318993 (Version 1)
Quarter: 2018Q3

REPORT INFORMATION
  Report Type: Spontaneous
  Country: US (occurrence: US)
  Receive Date: 20180820
  Receipt Date: 20180820
  Transmission Date: 20181010
  Serious: Yes (Hospitalization)
  Sender: FDA-Public Use
  Company Number: None

PATIENT
  Age: 74 Year
  Sex: Female
  Weight: 46.4 kg

DRUGS (2)
  1. GILOTRIF [Suspect]
     Active Substance: AFATINIB
     Indication: NON-SMALL CELL LUNG CANCER STAGE IV
     Route: 048
     Dates: start: 20180413, end: 20180522
  2. GILOTRIF [Suspect]
     Active Substance: AFATINIB
     Indication: METASTASES TO CENTRAL NERVOUS SYSTEM
     Route: 048
     Dates: start: 20180413, end: 20180522

REACTIONS (5)
  - Transaminases increased [None]
  - Acute kidney injury [None]
  - Hyperbilirubinaemia [None]
  - Urinary tract infection [None]
  - Diarrhoea [None]

NARRATIVE: CASE EVENT DATE: 20180523
